FAERS Safety Report 13152666 (Version 4)
Quarter: 2017Q4

REPORT INFORMATION
  Report Type: Spontaneous
  Country: JP (occurrence: JP)
  Receive Date: 20170125
  Receipt Date: 20171122
  Transmission Date: 20180320
  Serious: Yes (Hospitalization, Other)
  Sender: FDA-Public Use
  Company Number: JP-BRISTOL-MYERS SQUIBB COMPANY-BMS-2017-005683

PATIENT
  Age: 78 Year
  Sex: Male

DRUGS (1)
  1. OPDIVO [Suspect]
     Active Substance: NIVOLUMAB
     Indication: NON-SMALL CELL LUNG CANCER RECURRENT
     Dosage: 180 MG, UNK
     Route: 041
     Dates: start: 20160607, end: 20160719

REACTIONS (4)
  - Medical device implantation [Unknown]
  - Malignant neoplasm progression [Unknown]
  - Pneumothorax [Recovered/Resolved]
  - Pleurodesis [Recovering/Resolving]

NARRATIVE: CASE EVENT DATE: 20160616
